FAERS Safety Report 7225581-4 (Version None)
Quarter: 2011Q1

REPORT INFORMATION
  Report Type: 
  Country: None (occurrence: None)
  Receive Date: 20110113
  Receipt Date: 20110103
  Transmission Date: 20110831
  Serious: Yes (Other)
  Sender: FDA-Public Use
  Company Number: US-SANOFI-AVENTIS-2010SA075996

PATIENT
  Age: 78 Year
  Sex: Female

DRUGS (6)
  1. COUMADIN [Suspect]
     Dates: end: 20090701
  2. LANTUS [Concomitant]
     Dosage: 34-35 UNITS DAILY
     Route: 058
  3. PLAVIX [Suspect]
     Route: 048
     Dates: start: 19990101, end: 20090701
  4. COUMADIN [Suspect]
     Route: 065
     Dates: start: 20090803
  5. PLAVIX [Suspect]
     Route: 048
     Dates: start: 20090802
  6. NOVOLOG [Concomitant]

REACTIONS (7)
  - TRANSIENT ISCHAEMIC ATTACK [None]
  - DYSPNOEA [None]
  - ACTIVITIES OF DAILY LIVING IMPAIRED [None]
  - TOOTH ABSCESS [None]
  - MYOCARDIAL INFARCTION [None]
  - ABASIA [None]
  - CATARACT [None]
